FAERS Safety Report 10098678 (Version 1)
Quarter: 2014Q2

REPORT INFORMATION
  Report Type: Report from Study
  Country: ID (occurrence: ID)
  Receive Date: 20140423
  Receipt Date: 20140423
  Transmission Date: 20141212
  Serious: Yes (Hospitalization)
  Sender: FDA-Public Use
  Company Number: ID-BAYER-2014-055072

PATIENT
  Age: 46 Year
  Sex: Male

DRUGS (1)
  1. NEXAVAR [Suspect]
     Indication: HEPATOCELLULAR CARCINOMA
     Dosage: 400 MG TOTAL DAILY DOSE, DOSE REGIMEN: 200 MG
     Route: 048
     Dates: start: 20131130, end: 201403

REACTIONS (1)
  - Metastases to lung [None]
